FAERS Safety Report 5380469-9 (Version None)
Quarter: 2007Q3

REPORT INFORMATION
  Report Type: 
  Country: None (occurrence: None)
  Receive Date: 20070706
  Receipt Date: 20070531
  Transmission Date: 20080115
  Serious: No
  Sender: FDA-Public Use
  Company Number: A0653689A

PATIENT
  Age: 64 Year
  Sex: Female

DRUGS (8)
  1. TYKERB [Suspect]
     Indication: BREAST CANCER
     Dosage: 5TAB PER DAY
     Route: 048
     Dates: start: 20070516
  2. XELODA [Suspect]
     Indication: BREAST CANCER
     Route: 065
     Dates: end: 20070514
  3. LASIX [Concomitant]
  4. COREG [Concomitant]
  5. LISINOPRIL [Concomitant]
  6. IBUPROFEN [Concomitant]
  7. TYLENOL [Concomitant]
  8. IMODIUM [Concomitant]

REACTIONS (1)
  - DIARRHOEA [None]
